FAERS Safety Report 24716437 (Version 1)
Quarter: 2024Q4

REPORT INFORMATION
  Report Type: Spontaneous
  Country: US (occurrence: None)
  Receive Date: 20241209
  Receipt Date: 20241209
  Transmission Date: 20250114
  Serious: Yes (Other)
  Sender: Public
  Company Number: None

PATIENT
  Sex: Female

DRUGS (9)
  1. AVONEX [Suspect]
     Active Substance: INTERFERON BETA-1A
     Indication: Multiple sclerosis
     Dosage: FREQ: INJECT 1 PEN IN THE MUSCLE ONCE A WEEK
     Route: 030
     Dates: start: 20210831
  2. AVONEX [Concomitant]
     Active Substance: INTERFERON BETA-1A
  3. BETAMETH [Concomitant]
  4. CICLOPIROX [Concomitant]
     Active Substance: CICLOPIROX
  5. DIAZEPAM [Concomitant]
     Active Substance: DIAZEPAM
  6. ESCITALOPRAM [Concomitant]
     Active Substance: ESCITALOPRAM OXALATE
  7. ESTRADIOL [Concomitant]
     Active Substance: ESTRADIOL
  8. EZETIMIBE [Concomitant]
     Active Substance: EZETIMIBE
  9. GABAPENTIN [Concomitant]
     Active Substance: GABAPENTIN

REACTIONS (1)
  - Breast cancer [None]
